FAERS Safety Report 7736998-3 (Version None)
Quarter: 2011Q3

REPORT INFORMATION
  Report Type: 
  Country: None (occurrence: None)
  Receive Date: 20110908
  Receipt Date: 20110826
  Transmission Date: 20111222
  Serious: Yes (Hospitalization)
  Sender: FDA-Public Use
  Company Number: US-ELI_LILLY_AND_COMPANY-US201012001975

PATIENT
  Sex: Female
  Weight: 65.76 kg

DRUGS (3)
  1. LEVOFLOXACIN [Concomitant]
  2. FORTEO [Suspect]
     Indication: OSTEOPOROSIS
     Dosage: 20 UG, DAILY (1/D)
     Dates: start: 20101201
  3. FORTEO [Suspect]
     Dosage: 20 UG, DAILY (1/D)
     Dates: end: 20110501

REACTIONS (4)
  - PSYCHOMOTOR HYPERACTIVITY [None]
  - HYPERSENSITIVITY [None]
  - SURGERY [None]
  - DIZZINESS [None]
